FAERS Safety Report 10769712 (Version 1)
Quarter: 2015Q1

REPORT INFORMATION
  Report Type: Spontaneous
  Country: JP (occurrence: JP)
  Receive Date: 20150206
  Receipt Date: 20150206
  Transmission Date: 20150721
  Serious: Yes (Death, Disabling, Other)
  Sender: FDA-Public Use
  Company Number: JP-CUBIST PHARMACEUTICALS, INC.-2014CBST001536

PATIENT

DRUGS (58)
  1. CUBICIN [Suspect]
     Active Substance: DAPTOMYCIN
     Dosage: 5.8 MG/KG, ONCE A DAY
     Route: 041
     Dates: start: 20140923, end: 20140924
  2. GLUCOSE [Concomitant]
     Active Substance: DEXTROSE
     Indication: PARENTERAL NUTRITION
     Dosage: 500 ML, BID
     Route: 041
     Dates: start: 20140925, end: 20140929
  3. SODIUM CHLORIDE. [Concomitant]
     Active Substance: SODIUM CHLORIDE
     Dosage: 40 ML, BID
     Route: 041
     Dates: start: 20140905, end: 20140915
  4. PRIMPERAN [Concomitant]
     Active Substance: METOCLOPRAMIDE HYDROCHLORIDE
     Indication: PROPHYLAXIS OF NAUSEA AND VOMITING
     Dosage: 10 MG, QD
     Route: 041
     Dates: start: 20140928, end: 20140929
  5. SILECE [Concomitant]
     Active Substance: FLUNITRAZEPAM
     Indication: INSOMNIA
     Dosage: 1 MG, QD
     Route: 041
     Dates: start: 20141001, end: 20141002
  6. LANSOPRAZOLE OD [Concomitant]
     Active Substance: LANSOPRAZOLE
     Dosage: 15 MG, QD
     Route: 048
     Dates: start: 20140919, end: 20141008
  7. SILECE [Concomitant]
     Active Substance: FLUNITRAZEPAM
     Dosage: 1 MG, QD
     Route: 048
     Dates: start: 20141003, end: 20141007
  8. BIOFERMIN R [Concomitant]
     Active Substance: BACILLUS SUBTILIS\LACTOBACILLUS ACIDOPHILUS\STREPTOCOCCUS FAECAIS
     Indication: GASTROINTESTINAL DISORDER THERAPY
     Dosage: 1 G, TID
     Route: 050
     Dates: start: 20140904, end: 20140918
  9. CALONAL [Concomitant]
     Active Substance: ACETAMINOPHEN
     Indication: PAIN
     Dosage: 400 MG, QID
     Route: 048
     Dates: start: 20140924, end: 20140930
  10. CUBICIN [Suspect]
     Active Substance: DAPTOMYCIN
     Indication: PSOAS ABSCESS
     Dosage: 350 MG, ONCE A DAY
     Route: 041
     Dates: start: 20140902, end: 20140902
  11. ELNEOPA NO.2 [Concomitant]
     Active Substance: AMINO ACIDS\CARBOHYDRATES\ELECTROLYTES NOS\VITAMINS
     Indication: PARENTERAL NUTRITION
     Dosage: 1000 ML, BID
     Route: 041
     Dates: start: 20140815, end: 20140924
  12. SOLDEM 1 [Concomitant]
     Indication: PARENTERAL NUTRITION
     Dosage: 200 ML, QD
     Route: 041
     Dates: start: 20140925, end: 20141008
  13. SODIUM CHLORIDE. [Concomitant]
     Active Substance: SODIUM CHLORIDE
     Indication: ELECTROLYTE SUBSTITUTION THERAPY
     Dosage: 20 ML, BID
     Route: 041
     Dates: start: 20140819, end: 20140904
  14. KCL [Concomitant]
     Active Substance: POTASSIUM CHLORIDE
     Indication: ELECTROLYTE SUBSTITUTION THERAPY
     Dosage: 20 MEQ, QD
     Route: 041
     Dates: start: 20140930, end: 20141008
  15. OXIFAST [Concomitant]
     Active Substance: OXYCODONE
     Indication: PAIN
     Dosage: 7.2 MG, QD
     Route: 041
     Dates: start: 20140929, end: 20141002
  16. OXIFAST [Concomitant]
     Active Substance: OXYCODONE
     Dosage: 9.6 MG, QD
     Route: 041
     Dates: start: 20141003, end: 20141009
  17. AMLODIPINE [Concomitant]
     Active Substance: AMLODIPINE BESYLATE
     Dosage: 5 MG, QD
     Route: 048
     Dates: start: 20140919, end: 20141007
  18. BIOFERMIN R [Concomitant]
     Active Substance: BACILLUS SUBTILIS\LACTOBACILLUS ACIDOPHILUS\STREPTOCOCCUS FAECAIS
     Dosage: 1 G, TID
     Route: 048
     Dates: start: 20140918, end: 20140922
  19. CUBICIN [Suspect]
     Active Substance: DAPTOMYCIN
     Dosage: 250 MG, ONCE A DAY
     Route: 041
     Dates: start: 20140923, end: 20140924
  20. FUNGUARD [Concomitant]
     Active Substance: MICAFUNGIN SODIUM
     Indication: FUNGAEMIA
     Dosage: 150 MG, QD
     Route: 041
     Dates: start: 20140826, end: 20140919
  21. NEOAMIYU [Concomitant]
     Active Substance: AMINO ACIDS
     Indication: PARENTERAL NUTRITION
     Dosage: 200 ML, QD
     Route: 041
     Dates: start: 20140925, end: 20141008
  22. DAIMEDIN MULTI [Concomitant]
     Indication: PARENTERAL NUTRITION
     Dosage: 1 DF, QD
     Route: 041
     Dates: start: 20140925, end: 20141008
  23. ACELIO [Concomitant]
     Active Substance: ACETAMINOPHEN
     Indication: PAIN
     Dosage: 700 MG, BID
     Route: 041
     Dates: start: 20140925, end: 20140925
  24. CIPROXAN                           /00697202/ [Concomitant]
     Active Substance: CIPROFLOXACIN
     Indication: DEVICE RELATED INFECTION
     Dosage: 200 MG, QD
     Route: 048
     Dates: start: 20140923, end: 20140925
  25. LANSOPRAZOLE OD [Concomitant]
     Active Substance: LANSOPRAZOLE
     Indication: GASTROOESOPHAGEAL REFLUX DISEASE
     Dosage: 15 MG, QD
     Route: 050
     Dates: start: 20140726, end: 20140919
  26. SODIUM CHLORIDE. [Concomitant]
     Active Substance: SODIUM CHLORIDE
     Dosage: 40 ML, QD
     Route: 041
     Dates: start: 20140925, end: 20140929
  27. ARTIST [Concomitant]
     Active Substance: CARVEDILOL
     Dosage: 10 MG, QD
     Route: 048
     Dates: start: 20140919, end: 20141007
  28. ARGAMATE [Concomitant]
     Active Substance: POLYSTYRENE
     Dosage: 25 G, TID
     Route: 048
     Dates: start: 20140925, end: 20140926
  29. CUBICIN [Suspect]
     Active Substance: DAPTOMYCIN
     Indication: STAPHYLOCOCCAL SEPSIS
     Dosage: 262.5 MG, ONCE A DAY
     Route: 041
     Dates: start: 20140828, end: 20140901
  30. CUBICIN [Suspect]
     Active Substance: DAPTOMYCIN
     Dosage: 6.1 MG/KG, ONCE A DAY
     Route: 041
     Dates: start: 20140916, end: 20140916
  31. LOXOPROFEN NA [Suspect]
     Active Substance: LOXOPROFEN SODIUM
     Indication: PAIN
     Dosage: 60 MG, BID
     Route: 048
     Dates: start: 20140804, end: 20140806
  32. ZYVOX [Concomitant]
     Active Substance: LINEZOLID
     Indication: SPONDYLITIS
     Dosage: 600 MG, BID
     Route: 041
     Dates: start: 20140903, end: 20140915
  33. ZYVOX [Concomitant]
     Active Substance: LINEZOLID
     Indication: PSOAS ABSCESS
     Dosage: 600 MG, BID
     Route: 041
     Dates: start: 20140925, end: 20141008
  34. PIPERACILLIN SODIUM [Concomitant]
     Active Substance: PIPERACILLIN SODIUM
     Indication: DEVICE RELATED INFECTION
     Dosage: 1 G, QID
     Route: 042
     Dates: start: 20140919, end: 20140925
  35. ACELIO [Concomitant]
     Active Substance: ACETAMINOPHEN
     Dosage: 700 MG, TID
     Route: 041
     Dates: start: 20140930, end: 20141008
  36. LOXOPROFEN NA [Suspect]
     Active Substance: LOXOPROFEN SODIUM
     Dosage: 60 MG, TID
     Route: 050
     Dates: start: 20140812, end: 20140924
  37. ACELIO [Concomitant]
     Active Substance: ACETAMINOPHEN
     Dosage: 700 MG, QID
     Route: 041
     Dates: start: 20140929, end: 20140929
  38. RACOL-NF [Concomitant]
     Indication: ENTERAL NUTRITION
     Dosage: 200 ML, BID
     Route: 050
     Dates: start: 20140815, end: 20140918
  39. SILECE [Concomitant]
     Active Substance: FLUNITRAZEPAM
     Indication: INSOMNIA
     Dosage: 1 MG, QD
     Route: 050
     Dates: start: 20140815, end: 20140917
  40. SILECE [Concomitant]
     Active Substance: FLUNITRAZEPAM
     Dosage: 1 MG, QD
     Route: 048
     Dates: start: 20140918, end: 20140930
  41. CUBICIN [Suspect]
     Active Substance: DAPTOMYCIN
     Indication: SPONDYLITIS
     Dosage: 6.1 MG/KG,  ONCE A DAY
     Route: 041
     Dates: start: 20140828, end: 20140901
  42. CUBICIN [Suspect]
     Active Substance: DAPTOMYCIN
     Indication: OFF LABEL USE
     Dosage: 8.1 MG/KG, ONCE A DAY
     Route: 041
     Dates: start: 20140902, end: 20140902
  43. CUBICIN [Suspect]
     Active Substance: DAPTOMYCIN
     Dosage: 8.1 MG/KG, ONCE A DAY
     Route: 041
     Dates: start: 20140917, end: 20140919
  44. HICALIQ RF [Concomitant]
     Active Substance: CALCIUM GLUCONATE\DEXTROSE\MAGNESIUM SULFATE\POTASSIUM ACETATE\POTASSIUM PHOSPHATE, DIBASIC\ZINC SULFATE
     Indication: PARENTERAL NUTRITION
     Dosage: 500 ML, QD
     Route: 041
     Dates: start: 20140925, end: 20141008
  45. SOLDEM 3A [Concomitant]
     Active Substance: CARBOHYDRATES\POTASSIUM CHLORIDE\SODIUM CHLORIDE\SODIUM LACTATE
     Indication: PARENTERAL NUTRITION
     Dosage: 500 ML, BID
     Route: 041
     Dates: start: 20140925, end: 20141009
  46. PRIMPERAN [Concomitant]
     Active Substance: METOCLOPRAMIDE HYDROCHLORIDE
     Dosage: 10 MG, TID
     Route: 041
     Dates: start: 20140930, end: 20140930
  47. AMLODIPINE [Concomitant]
     Active Substance: AMLODIPINE BESYLATE
     Indication: HYPERTENSION
     Dosage: 5 MG, QD
     Route: 050
     Dates: start: 20140902, end: 20140918
  48. ARTIST [Concomitant]
     Active Substance: CARVEDILOL
     Indication: TACHYCARDIA
     Dosage: 10 MG, QD
     Route: 050
     Dates: start: 20140904, end: 20140918
  49. ARGAMATE [Concomitant]
     Active Substance: POLYSTYRENE
     Indication: HYPERKALAEMIA
     Dosage: 50 G, BID
     Route: 048
     Dates: start: 20140919, end: 20140922
  50. CUBICIN [Suspect]
     Active Substance: DAPTOMYCIN
     Dosage: 262.5 MG, ONCE A DAY
     Route: 041
     Dates: start: 20140916, end: 20140916
  51. CUBICIN [Suspect]
     Active Substance: DAPTOMYCIN
     Dosage: 350 MG, ONCE A DAY
     Route: 041
     Dates: start: 20140917, end: 20140919
  52. ZYVOX [Concomitant]
     Active Substance: LINEZOLID
     Indication: STAPHYLOCOCCAL SEPSIS
     Dosage: 600 MG, QD
     Route: 041
     Dates: start: 20140902, end: 20140902
  53. ELEMENMIC [Concomitant]
     Active Substance: CUPRIC SULFATE\FERRIC CHLORIDE\MANGANESE CHLORIDE\POTASSIUM IODIDE\ZINC SULFATE
     Indication: PARENTERAL NUTRITION
     Dosage: 2 ML, QD
     Route: 041
     Dates: start: 20140925, end: 20141008
  54. SODIUM CHLORIDE. [Concomitant]
     Active Substance: SODIUM CHLORIDE
     Dosage: 40 ML, QD
     Route: 041
     Dates: start: 20140916, end: 20140922
  55. SODIUM CHLORIDE. [Concomitant]
     Active Substance: SODIUM CHLORIDE
     Dosage: 60 ML, QD
     Route: 041
     Dates: start: 20140930, end: 20141003
  56. SODIUM CHLORIDE. [Concomitant]
     Active Substance: SODIUM CHLORIDE
     Dosage: 80 ML, QD
     Route: 041
     Dates: start: 20141004, end: 20141008
  57. ACELIO [Concomitant]
     Active Substance: ACETAMINOPHEN
     Dosage: 700 MG, TID
     Route: 041
     Dates: start: 20140926, end: 20140928
  58. OXINORM                            /00045603/ [Concomitant]
     Indication: PAIN
     Dosage: 20 MG, QID
     Route: 048
     Dates: start: 20140725, end: 20140929

REACTIONS (5)
  - Off label use [Unknown]
  - Acute kidney injury [Recovering/Resolving]
  - Disseminated intravascular coagulation [Fatal]
  - Hyperkalaemia [Recovered/Resolved]
  - Abnormal behaviour [Unknown]

NARRATIVE: CASE EVENT DATE: 201409
